FAERS Safety Report 8576310-3 (Version None)
Quarter: 2012Q3

REPORT INFORMATION
  Report Type: 
  Country: None (occurrence: None)
  Receive Date: 20120724
  Receipt Date: 20120713
  Transmission Date: 20120928
  Serious: Yes (Other)
  Sender: FDA-Public Use
  Company Number: AUR-APL-2012-03115

PATIENT
  Sex: Male
  Weight: 3.1 kg

DRUGS (1)
  1. PAROXETINE HYDROCHLORIDE [Suspect]
     Indication: ANXIETY DISORDER
     Dosage: 20 MG/DAY, TRANSPLACENTAL
     Route: 064

REACTIONS (4)
  - FOETAL EXPOSURE DURING PREGNANCY [None]
  - BLOOD GLUCOSE DECREASED [None]
  - NEONATAL RESPIRATORY DISTRESS SYNDROME [None]
  - MECONIUM IN AMNIOTIC FLUID [None]
